FAERS Safety Report 22137185 (Version 1)
Quarter: 2023Q1

REPORT INFORMATION
  Report Type: Spontaneous
  Country: GB (occurrence: GB)
  Receive Date: 20230324
  Receipt Date: 20230324
  Transmission Date: 20230418
  Serious: Yes (Disabling)
  Sender: FDA-Public Use
  Company Number: GB-PURDUE-USA-2021-0300821

PATIENT
  Age: 73 Year
  Sex: Female
  Weight: 71 kg

DRUGS (6)
  1. OXYCODONE HYDROCHLORIDE [Suspect]
     Active Substance: OXYCODONE HYDROCHLORIDE
     Indication: Ill-defined disorder
     Dosage: 5 MILLIGRAM
     Route: 048
     Dates: start: 20210514, end: 20210519
  2. OXYCODONE HYDROCHLORIDE [Concomitant]
     Active Substance: OXYCODONE HYDROCHLORIDE
     Indication: Product used for unknown indication
     Dosage: 1 DOSAGE FORM, Q12H
     Route: 065
     Dates: start: 20210505
  3. CALCIUM CARBONATE\CHOLECALCIFEROL [Concomitant]
     Active Substance: CALCIUM CARBONATE\CHOLECALCIFEROL
     Indication: Product used for unknown indication
     Dosage: 1 DOSAGE FORM, BID
     Route: 065
     Dates: start: 20181205
  4. AMITRIPTYLINE HYDROCHLORIDE [Concomitant]
     Active Substance: AMITRIPTYLINE HYDROCHLORIDE
     Indication: Product used for unknown indication
     Dosage: AT NIGHT
     Route: 065
     Dates: start: 20190311, end: 20210330
  5. PREGABALIN [Concomitant]
     Active Substance: PREGABALIN
     Indication: Product used for unknown indication
     Dosage: TAKE 2 WITH BREAKFAST, 1 WITH LUNCH AND 1 WITH EVENING MEAL
     Route: 065
     Dates: start: 20210311
  6. OXYCODONE HYDROCHLORIDE [Concomitant]
     Active Substance: OXYCODONE HYDROCHLORIDE
     Indication: Product used for unknown indication
     Dosage: TAKE 1MG/1ML EVERY 2-4 HOURLY
     Route: 065
     Dates: start: 20210330, end: 20210427

REACTIONS (3)
  - Erythema [Recovering/Resolving]
  - Pruritus [Recovering/Resolving]
  - Diarrhoea [Recovering/Resolving]

NARRATIVE: CASE EVENT DATE: 20210514
